FAERS Safety Report 17869938 (Version 1)
Quarter: 2020Q2

REPORT INFORMATION
  Report Type: Spontaneous
  Country: ES (occurrence: ES)
  Receive Date: 20200608
  Receipt Date: 20200608
  Transmission Date: 20200714
  Serious: Yes (Other)
  Sender: FDA-Public Use
  Company Number: ES-ACCORD-184440

PATIENT
  Age: 75 Year
  Sex: Female

DRUGS (7)
  1. ENALAPRIL [Concomitant]
     Active Substance: ENALAPRIL
     Route: 048
  2. AMLODIPINE [Concomitant]
     Active Substance: AMLODIPINE BESYLATE
     Route: 048
     Dates: start: 20171128
  3. METFORMIN [Concomitant]
     Active Substance: METFORMIN HYDROCHLORIDE
     Route: 048
     Dates: start: 20120320
  4. LUMIGAN [Concomitant]
     Active Substance: BIMATOPROST
     Dosage: STRENGTH: 0,1 MG/ML, EYE DROPS SOLUTION, 1 BOTTLE OF 3 ML
     Route: 047
     Dates: start: 20180614
  5. ANASTROZOLE. [Suspect]
     Active Substance: ANASTROZOLE
     Indication: BREAST CANCER
     Route: 048
     Dates: start: 20180827, end: 20181130
  6. PARACETAMOL [Concomitant]
     Active Substance: ACETAMINOPHEN
     Route: 048
     Dates: start: 20180927
  7. OSVICAL D [Concomitant]
     Dosage: STRENGTH: 600 MG/400 UI EFFERVESCENT GRANULES, 60 SACHETS
     Route: 048
     Dates: start: 20180827

REACTIONS (1)
  - Musculoskeletal pain [Recovered/Resolved]

NARRATIVE: CASE EVENT DATE: 20180920
